FAERS Safety Report 7179481-9 (Version None)
Quarter: 2010Q4

REPORT INFORMATION
  Report Type: 
  Country: None (occurrence: None)
  Receive Date: 20101208
  Receipt Date: 20101124
  Transmission Date: 20110411
  Serious: Yes (Hospitalization)
  Sender: FDA-Public Use
  Company Number: 2010-3905

PATIENT
  Age: 68 Year
  Sex: Female

DRUGS (1)
  1. APO-GO (APOMORPHINE HYDROCHLORIDE) (APOMORPHINE HYDROCHLORIDE) [Suspect]
     Indication: PRODUCT USED FOR UNKNOWN INDICATION
     Dosage: 38.4 MG (1.6 MG, CONTINUOUS PER HOUR FOR 24 HOURS), SUBCUTANEOUS
     Route: 058
     Dates: start: 20091014, end: 20101110

REACTIONS (3)
  - INJECTION SITE REACTION [None]
  - NODULE [None]
  - PURULENCE [None]
